FAERS Safety Report 11130437 (Version 1)
Quarter: 2015Q2

REPORT INFORMATION
  Report Type: Report from Study
  Country: US (occurrence: US)
  Receive Date: 20150522
  Receipt Date: 20150522
  Transmission Date: 20150821
  Serious: No
  Sender: FDA-Public Use
  Company Number: US-AMGEN-USASL2015047830

PATIENT
  Age: 25 Year
  Sex: Female
  Weight: 124.72 kg

DRUGS (4)
  1. ENBREL [Suspect]
     Active Substance: ETANERCEPT
     Indication: PRODUCT USED FOR UNKNOWN INDICATION
     Dosage: 50 MG/ML, ONE INJECTION PER WEEK
     Route: 065
  2. PROAIR HFA [Concomitant]
     Active Substance: ALBUTEROL SULFATE
     Dosage: UNK
  3. AER [Concomitant]
     Dosage: UNK
  4. TRIVORA-28 [Concomitant]
     Dosage: UNK

REACTIONS (2)
  - Injection site erythema [Unknown]
  - Injection site pruritus [Unknown]
